FAERS Safety Report 18502374 (Version 1)
Quarter: 2020Q4

REPORT INFORMATION
  Report Type: Spontaneous
  Country: DE (occurrence: DE)
  Receive Date: 20201113
  Receipt Date: 20201113
  Transmission Date: 20210114
  Serious: Yes (Other)
  Sender: FDA-Public Use
  Company Number: DE-BRISTOL-MYERS SQUIBB COMPANY-BMS-2020-093870

PATIENT
  Age: 54 Year
  Sex: Male

DRUGS (3)
  1. IPILIMUMAB [Suspect]
     Active Substance: IPILIMUMAB
     Indication: MALIGNANT MELANOMA
     Dosage: 3 MILLIGRAM/KILOGRAM (4 COURSES)
     Route: 065
     Dates: start: 20190520
  2. NIVOLUMAB [Suspect]
     Active Substance: NIVOLUMAB
     Indication: MALIGNANT MELANOMA
     Dosage: 1 MILLIGRAM/KILOGRAM (4 COURSES)
     Route: 065
     Dates: start: 20190520
  3. PROTEIN S [Concomitant]
     Active Substance: PROTEIN S HUMAN
     Indication: PRODUCT USED FOR UNKNOWN INDICATION
     Dosage: UNK
     Route: 065
     Dates: end: 202008

REACTIONS (3)
  - Immune-mediated enterocolitis [Recovered/Resolved]
  - Hypothyroidism [Recovered/Resolved]
  - Pancreatic enzymes increased [Recovered/Resolved]
